FAERS Safety Report 6163936-X (Version None)
Quarter: 2009Q2

REPORT INFORMATION
  Report Type: 
  Country: None (occurrence: None)
  Receive Date: 20090420
  Receipt Date: 20090306
  Transmission Date: 20091009
  Serious: Yes (Death)
  Sender: FDA-Public Use
  Company Number: 2009-195013-NL

PATIENT
  Sex: Male

DRUGS (1)
  1. ROCURONIUM BROMIDE [Suspect]
     Dates: start: 20090305, end: 20090305

REACTIONS (1)
  - COMPLETED SUICIDE [None]
